FAERS Safety Report 18483873 (Version 1)
Quarter: 2020Q4

REPORT INFORMATION
  Report Type: Report from Study
  Country: None (occurrence: NL)
  Receive Date: 20201109
  Receipt Date: 20201109
  Transmission Date: 20210114
  Serious: Yes (Other)
  Sender: FDA-Public Use
  Company Number: NL-ABBVIE-20K-114-3571628-00

PATIENT
  Sex: Male

DRUGS (2)
  1. DUODOPA [Suspect]
     Active Substance: CARBIDOPA\LEVODOPA
     Dosage: MD: 13.5 ML, CD: 5.8 ML/HR, ED: 2.8 ML?REMAINS AT 16 HOURS
     Route: 050
     Dates: start: 2020
  2. DUODOPA [Suspect]
     Active Substance: CARBIDOPA\LEVODOPA
     Indication: PARKINSON^S DISEASE
     Dosage: MD: 13.5 ML, CD: 2.8 ML/HR, ED: 2.0 ML?REMAINS AT 16 HOURS
     Route: 050
     Dates: start: 20200831, end: 2020

REACTIONS (18)
  - Fall [Not Recovered/Not Resolved]
  - Dizziness [Not Recovered/Not Resolved]
  - Gait disturbance [Not Recovered/Not Resolved]
  - Discomfort [Not Recovered/Not Resolved]
  - Skin abrasion [Not Recovered/Not Resolved]
  - Fibroma [Not Recovered/Not Resolved]
  - Malaise [Not Recovered/Not Resolved]
  - Incorrect dose administered [Unknown]
  - Mobility decreased [Not Recovered/Not Resolved]
  - Dyskinesia [Not Recovered/Not Resolved]
  - Stress [Not Recovered/Not Resolved]
  - Fatigue [Not Recovered/Not Resolved]
  - Orthostatic hypotension [Not Recovered/Not Resolved]
  - On and off phenomenon [Not Recovered/Not Resolved]
  - Stoma site discharge [Not Recovered/Not Resolved]
  - SARS-CoV-2 test positive [Not Recovered/Not Resolved]
  - Loss of consciousness [Not Recovered/Not Resolved]
  - Bradykinesia [Not Recovered/Not Resolved]

NARRATIVE: CASE EVENT DATE: 2020
